FAERS Safety Report 21545561 (Version 2)
Quarter: 2022Q4

REPORT INFORMATION
  Report Type: Report from Study
  Country: RO (occurrence: RO)
  Receive Date: 20221103
  Receipt Date: 20221108
  Transmission Date: 20230113
  Serious: Yes (Death, Disabling)
  Sender: FDA-Public Use
  Company Number: RO-ABBVIE-4184985

PATIENT
  Age: 65 Year
  Sex: Male

DRUGS (3)
  1. CARBIDOPA\LEVODOPA [Suspect]
     Active Substance: CARBIDOPA\LEVODOPA
     Indication: Parkinson^s disease
     Dosage: DM=4.00 DC=4.20 ED=2.50 NRED=3; DMN=0.00 DCN=0.00 EDN=0.00 NREDN=0
     Route: 050
     Dates: start: 20181017, end: 20221104
  2. CARBIDOPA\LEVODOPA [Suspect]
     Active Substance: CARBIDOPA\LEVODOPA
  3. Kadermin [Concomitant]
     Indication: Stoma site irritation
     Dosage: TIME INTERVAL: 0.33333333 DAYS
     Dates: start: 20221031

REACTIONS (6)
  - Immobilisation syndrome [Not Recovered/Not Resolved]
  - Cardio-respiratory arrest [Fatal]
  - Granuloma [Not Recovered/Not Resolved]
  - Food refusal [Not Recovered/Not Resolved]
  - Stoma site irritation [Not Recovered/Not Resolved]
  - Haemorrhage [Not Recovered/Not Resolved]

NARRATIVE: CASE EVENT DATE: 20221029
